FAERS Safety Report 26141497 (Version 1)
Quarter: 2025Q4

REPORT INFORMATION
  Report Type: Spontaneous
  Country: US (occurrence: US)
  Receive Date: 20251210
  Receipt Date: 20251210
  Transmission Date: 20260118
  Serious: No
  Sender: PFIZER
  Company Number: US-PFIZER INC-PV202300019227

PATIENT
  Age: 79 Year
  Sex: Female

DRUGS (4)
  1. IBRANCE [Suspect]
     Active Substance: PALBOCICLIB
     Indication: Breast cancer female
     Dosage: UNK UNK, CYCLIC (D1-21 28D X 24 CYCLES)
     Route: 048
     Dates: start: 20230714
  2. IBRANCE [Suspect]
     Active Substance: PALBOCICLIB
     Indication: Iron deficiency anaemia
     Dosage: 100 MG, CYCLIC (TAKE ONE TABLET BY MOUTH ONCE)
     Route: 048
  3. IBRANCE [Suspect]
     Active Substance: PALBOCICLIB
     Indication: Chronic sinusitis
     Dosage: 125 MG, CYCLIC (TAKE ONE TABLET BY MOUTH ONCE)
     Route: 048
  4. IBRANCE [Suspect]
     Active Substance: PALBOCICLIB
     Dosage: 75 MG, CYCLIC (TAKE (1) TABLET ONCE DAILY FOR 21 DAYS ON THEN 7 DAYS OFF, WITH OR WITHOUT FOOD)
     Route: 048

REACTIONS (1)
  - Upper respiratory tract infection [Unknown]
